FAERS Safety Report 4684680-1 (Version None)
Quarter: 2005Q2

REPORT INFORMATION
  Report Type: 
  Country: None (occurrence: None)
  Receive Date: 20050531
  Receipt Date: 20041215
  Transmission Date: 20051028
  Serious: Yes (Hospitalization, Other)
  Sender: FDA-Public Use
  Company Number: US_0501109831

PATIENT
  Age: 27 Year
  Sex: Male

DRUGS (11)
  1. ZYPREXA [Suspect]
     Indication: BIPOLAR I DISORDER
     Dates: start: 20000929, end: 20001201
  2. PEPCID [Concomitant]
  3. PREDNISONE TAB [Concomitant]
  4. WELLBUTRIN [Concomitant]
  5. LITHOBID [Concomitant]
  6. HALDOL (HALOPERIDOL DECANOATE) [Concomitant]
  7. ATIVAN [Concomitant]
  8. BENADRYL [Concomitant]
  9. COGENTIN [Concomitant]
  10. ALLEGRA [Concomitant]
  11. PEN-VEE-K (PHENOXYMETHYLPENICILLIN POTASSIUM) [Concomitant]

REACTIONS (2)
  - DIABETES MELLITUS [None]
  - DIABETIC KETOACIDOSIS [None]
